FAERS Safety Report 18399033 (Version 11)
Quarter: 2021Q3

REPORT INFORMATION
  Report Type: Report from Study
  Country: ES (occurrence: ES)
  Receive Date: 20201019
  Receipt Date: 20210812
  Transmission Date: 20211014
  Serious: Yes (Hospitalization)
  Sender: FDA-Public Use
  Company Number: ES-EISAI MEDICAL RESEARCH-EC-2020-082302

PATIENT
  Age: 62 Year
  Sex: Male
  Weight: 67 kg

DRUGS (11)
  1. PEMBROLIZUMAB. [Suspect]
     Active Substance: PEMBROLIZUMAB
     Route: 042
     Dates: start: 20200925, end: 20200925
  2. SINTROM [Suspect]
     Active Substance: ACENOCOUMAROL
     Indication: DEEP VEIN THROMBOSIS
     Route: 048
     Dates: start: 201808, end: 20201009
  3. ACETAMINOPHEN. [Concomitant]
     Active Substance: ACETAMINOPHEN
     Dates: start: 20200918, end: 20201010
  4. LENVATINIB [Suspect]
     Active Substance: LENVATINIB
     Dosage: REDUCED DOSE
     Route: 048
     Dates: start: 20201028
  5. ENALAPRIL MALEATE. [Concomitant]
     Active Substance: ENALAPRIL MALEATE
     Dates: start: 20200908, end: 20201010
  6. LENVATINIB [Suspect]
     Active Substance: LENVATINIB
     Indication: SQUAMOUS CELL CARCINOMA OF HEAD AND NECK
     Route: 048
     Dates: start: 20200904, end: 20201007
  7. FENTANYL. [Concomitant]
     Active Substance: FENTANYL
     Dates: start: 20200918, end: 20201024
  8. LIDOCAINE HYDROCHLORIDE. [Concomitant]
     Active Substance: LIDOCAINE HYDROCHLORIDE
     Route: 048
     Dates: start: 20200919, end: 20201010
  9. PEMBROLIZUMAB. [Suspect]
     Active Substance: PEMBROLIZUMAB
     Indication: SQUAMOUS CELL CARCINOMA OF HEAD AND NECK
     Route: 042
     Dates: start: 20200904, end: 20200904
  10. PEMBROLIZUMAB. [Suspect]
     Active Substance: PEMBROLIZUMAB
     Route: 042
     Dates: start: 20201028
  11. AMLODIPINE [Concomitant]
     Active Substance: AMLODIPINE BESYLATE
     Dates: start: 20200919, end: 20201010

REACTIONS (1)
  - Tumour haemorrhage [Recovered/Resolved]

NARRATIVE: CASE EVENT DATE: 20201010
